FAERS Safety Report 5096897-5 (Version None)
Quarter: 2006Q3

REPORT INFORMATION
  Report Type: 
  Country: None (occurrence: None)
  Receive Date: 20060901
  Receipt Date: 20060901
  Transmission Date: 20061208
  Serious: No
  Sender: FDA-Public Use
  Company Number: None

PATIENT
  Age: 64 Year
  Sex: Female
  Weight: 65.5 kg

DRUGS (2)
  1. LIDODERM [Suspect]
     Indication: PAIN
     Dosage: SMALL AMOUNT PEN TOP
     Route: 061
     Dates: start: 20051215, end: 20051217
  2. LIDODERM [Suspect]
     Indication: PERIODONTAL DISEASE
     Dosage: SMALL AMOUNT PEN TOP
     Route: 061
     Dates: start: 20051215, end: 20051217

REACTIONS (3)
  - MOUTH ULCERATION [None]
  - ORAL SOFT TISSUE DISORDER [None]
  - PHARMACEUTICAL PRODUCT COMPLAINT [None]
